FAERS Safety Report 20232648 (Version 1)
Quarter: 2021Q4

REPORT INFORMATION
  Report Type: Spontaneous
  Country: MY (occurrence: MY)
  Receive Date: 20211227
  Receipt Date: 20211227
  Transmission Date: 20220303
  Serious: Yes (Other)
  Sender: FDA-Public Use
  Company Number: MY-ABBOTT-2021A-1344353

PATIENT
  Age: 62 Year
  Sex: Male

DRUGS (1)
  1. FENOFIBRATE [Suspect]
     Active Substance: FENOFIBRATE
     Indication: Hyperlipidaemia
     Dosage: 145 MG MILLIGRAM(S) 1 DAY(S)?LIPANTHYL PENTA
     Route: 048

REACTIONS (6)
  - Dyspnoea [Recovered/Resolved]
  - Abdominal distension [Recovered/Resolved]
  - Lethargy [Recovered/Resolved]
  - International normalised ratio increased [Recovered/Resolved]
  - Liver function test increased [Recovered/Resolved]
  - Constipation [Recovered/Resolved]
